FAERS Safety Report 5079314-0 (Version None)
Quarter: 2006Q3

REPORT INFORMATION
  Report Type: 
  Country: None (occurrence: None)
  Receive Date: 20060814
  Receipt Date: 20060710
  Transmission Date: 20061208
  Serious: Yes (Other)
  Sender: FDA-Public Use
  Company Number: 2006UW14042

PATIENT
  Sex: Female

DRUGS (4)
  1. ATENOLOL [Suspect]
  2. DILTIAZEM [Concomitant]
     Dosage: 120 HS + 240 AM
  3. AVALIDE [Concomitant]
     Dosage: 150/12.5
  4. AVAPRO [Concomitant]

REACTIONS (4)
  - AMPUTATION [None]
  - BLINDNESS UNILATERAL [None]
  - CEREBRAL HAEMORRHAGE [None]
  - ROAD TRAFFIC ACCIDENT [None]
